FAERS Safety Report 10098639 (Version 1)
Quarter: 2014Q2

REPORT INFORMATION
  Report Type: Spontaneous
  Country: US (occurrence: None)
  Receive Date: 20140422
  Receipt Date: 20140422
  Transmission Date: 20141212
  Serious: Yes (Death)
  Sender: FDA-Public Use
  Company Number: None

PATIENT
  Age: 88 Year
  Sex: Female
  Weight: 5.44 kg

DRUGS (1)
  1. DECITABINE [Suspect]
     Indication: ACUTE MYELOID LEUKAEMIA
     Dosage: QDX10; 28DAYCYCLE
     Dates: start: 20140207, end: 20140316

REACTIONS (7)
  - Pneumonia [None]
  - Cerebrovascular accident [None]
  - Pneumonia aspiration [None]
  - Mydriasis [None]
  - Respiratory arrest [None]
  - Cardiac arrest [None]
  - Pulse absent [None]
